FAERS Safety Report 8617342 (Version 2)
Quarter: 2014Q1

REPORT INFORMATION
  Report Type: Spontaneous
  Country: US (occurrence: None)
  Receive Date: 20120323
  Receipt Date: 20130305
  Transmission Date: 20141002
  Serious: Yes (Other)
  Sender: FDA-Public Use
  Company Number: 163-21880-11114151

PATIENT
  Age: 66 Year
  Sex: Male

DRUGS (8)
  1. REVLIMID [Suspect]
     Indication: PLASMA CELL MYELOMA
     Dosage: 25 MG, DAILY (21 DAYS ON/14 DAYS OFF), PO
     Route: 048
     Dates: start: 20111006, end: 20111121
  2. DECADRON [Concomitant]
  3. ACYCLOVIR [Concomitant]
  4. M.V.I. ADULT [Concomitant]
  5. PEPCID [Concomitant]
  6. ACETAMINOPHEN [Concomitant]
  7. ASPIRIN (ACETYLSALICYLIC ACID) [Concomitant]
  8. BORTEZOMIB [Concomitant]

REACTIONS (1)
  - Jugular vein thrombosis [None]
